FAERS Safety Report 6558956-7 (Version None)
Quarter: 2010Q1

REPORT INFORMATION
  Report Type: 
  Country: None (occurrence: None)
  Receive Date: 20100129
  Receipt Date: 20100121
  Transmission Date: 20100710
  Serious: Yes (Hospitalization, Other)
  Sender: FDA-Public Use
  Company Number: MX-ELI_LILLY_AND_COMPANY-MX200911006872

PATIENT
  Sex: Male
  Weight: 76 kg

DRUGS (3)
  1. BYETTA [Suspect]
     Indication: WEIGHT CONTROL
     Dosage: 5 UG, DAILY (1/D)
     Route: 058
  2. INSULIN [Concomitant]
     Dosage: 70 U, UNKNOWN
     Route: 065
  3. INSULIN [Concomitant]
     Dosage: 100 U, UNKNOWN
     Route: 065

REACTIONS (9)
  - BLOOD GLUCOSE INCREASED [None]
  - CONSTIPATION [None]
  - DIZZINESS [None]
  - GASTROINTESTINAL OBSTRUCTION [None]
  - KETOACIDOSIS [None]
  - OFF LABEL USE [None]
  - PANCREATIC INSUFFICIENCY [None]
  - VOMITING [None]
  - WEIGHT DECREASED [None]
